APPROVED DRUG PRODUCT: IBUPROFEN
Active Ingredient: IBUPROFEN
Strength: 40MG/ML
Dosage Form/Route: SUSPENSION/DROPS;ORAL
Application: A075217 | Product #001
Applicant: L PERRIGO CO
Approved: Dec 16, 1998 | RLD: No | RS: No | Type: OTC